FAERS Safety Report 11905904 (Version 1)
Quarter: 2016Q1

REPORT INFORMATION
  Report Type: Spontaneous
  Country: US (occurrence: None)
  Receive Date: 20160108
  Receipt Date: 20160108
  Transmission Date: 20160526
  Serious: No
  Sender: FDA-Public Use
  Company Number: None

PATIENT
  Age: 55 Year
  Sex: Female
  Weight: 65.77 kg

DRUGS (1)
  1. NICOTINE POLACRILEX [Suspect]
     Active Substance: NICOTINE
     Indication: SMOKING CESSATION THERAPY
     Dosage: 1 PIECE; EVERY 1-2 HOURS, CHEWED
     Dates: start: 20151226, end: 20160102

REACTIONS (14)
  - Choking sensation [None]
  - Drug ineffective [None]
  - Product quality control issue [None]
  - Oral discomfort [None]
  - Product taste abnormal [None]
  - Glossodynia [None]
  - Overdose [None]
  - Abdominal discomfort [None]
  - Tongue ulceration [None]
  - Dizziness [None]
  - Chemical injury [None]
  - Product formulation issue [None]
  - Throat irritation [None]
  - Product substitution issue [None]

NARRATIVE: CASE EVENT DATE: 20151226
